FAERS Safety Report 12075105 (Version 4)
Quarter: 2016Q2

REPORT INFORMATION
  Report Type: Report from Study
  Country: MX (occurrence: MX)
  Receive Date: 20160212
  Receipt Date: 20160414
  Transmission Date: 20160815
  Serious: Yes (Death, Hospitalization, Other)
  Sender: FDA-Public Use
  Company Number: MX-UCBSA-2016001556

PATIENT
  Age: 18 Year
  Sex: Female
  Weight: 47 kg

DRUGS (11)
  1. CERTOLIZUMAB PEGOL JIA [Suspect]
     Active Substance: CERTOLIZUMAB PEGOL
     Indication: JUVENILE IDIOPATHIC ARTHRITIS
     Dosage: 100 MG, EV 2 WEEKS(QOW)
     Route: 058
     Dates: start: 20150119, end: 20151221
  2. FERRANIN [Concomitant]
     Indication: PRODUCT USED FOR UNKNOWN INDICATION
  3. OMEPRAZOLE. [Concomitant]
     Active Substance: OMEPRAZOLE
     Indication: ADRENAL SUPPRESSION
     Dosage: 20 MG, 2X/DAY (BID)
     Route: 042
     Dates: start: 20151221, end: 20151229
  4. HYDROCORTISONE. [Concomitant]
     Active Substance: HYDROCORTISONE
     Indication: ADRENAL SUPPRESSION
     Dosage: 50 MG, 4X/DAY (EVERY 6 HRS)
     Route: 042
     Dates: start: 20151221, end: 20151229
  5. PREDNISONE. [Concomitant]
     Active Substance: PREDNISONE
     Indication: RHEUMATOID ARTHRITIS
     Dosage: 7.5 MG, ONCE DAILY (QD)
     Route: 048
     Dates: start: 20140404
  6. PREGABALIN. [Concomitant]
     Active Substance: PREGABALIN
     Indication: PRODUCT USED FOR UNKNOWN INDICATION
  7. PREDNISONE. [Concomitant]
     Active Substance: PREDNISONE
     Dosage: 5 MG, 3X/DAY (TID)
  8. METHOTREXATE [Concomitant]
     Active Substance: METHOTREXATE
     Indication: RHEUMATOID ARTHRITIS
     Dosage: 17.5 MG, WEEKLY (QW)
     Route: 048
     Dates: start: 20140730
  9. CIPROFLOXACIN. [Concomitant]
     Active Substance: CIPROFLOXACIN
  10. CALCITRIOL. [Concomitant]
     Active Substance: CALCITRIOL
     Indication: PRODUCT USED FOR UNKNOWN INDICATION
  11. NAPROXEN. [Concomitant]
     Active Substance: NAPROXEN
     Indication: PRODUCT USED FOR UNKNOWN INDICATION

REACTIONS (2)
  - Tuberculosis liver [Fatal]
  - Septic shock [Fatal]

NARRATIVE: CASE EVENT DATE: 20151228
